FAERS Safety Report 8825238 (Version 3)
Quarter: 2012Q4

REPORT INFORMATION
  Report Type: 
  Country: JP (occurrence: JP)
  Receive Date: 20121004
  Receipt Date: 20121101
  Transmission Date: 20130627
  Serious: Yes (Life-Threatening)
  Sender: FDA-Public Use
  Company Number: JP-AMGEN-JPNCT2012062997

PATIENT
  Age: 89 Year
  Sex: Male

DRUGS (24)
  1. DARBEPOETIN ALFA [Suspect]
     Indication: NEPHROGENIC ANAEMIA
     Dosage: 30 mug, qwk
     Route: 040
     Dates: start: 20120321, end: 20120528
  2. DARBEPOETIN ALFA [Suspect]
     Dosage: 15 mug, qwk
     Route: 040
     Dates: start: 20120604, end: 20120806
  3. DARBEPOETIN ALFA [Suspect]
     Dosage: 10 mug, qwk
     Route: 040
     Dates: start: 20120813, end: 20120820
  4. FESIN [Concomitant]
     Dosage: UNK
     Route: 040
  5. PENLES [Concomitant]
     Dosage: UNK
     Route: 062
  6. TELEMINSOFT [Concomitant]
     Dosage: UNK
     Route: 054
  7. NITRODERM [Concomitant]
     Dosage: UNK
     Route: 062
  8. YAKUBAN [Concomitant]
     Dosage: UNK
     Route: 062
  9. ONEALFA [Concomitant]
     Dosage: UNK
     Route: 048
  10. LAXOBERON [Concomitant]
     Dosage: UNK
     Route: 048
  11. ALOSITOL [Concomitant]
     Dosage: UNK
     Route: 048
  12. WARFARIN [Concomitant]
     Dosage: UNK
     Route: 048
  13. DEPAS [Concomitant]
     Dosage: UNK
     Route: 048
  14. GASTER [Concomitant]
     Dosage: UNK
     Route: 048
  15. MARZULENE-S [Concomitant]
     Dosage: UNK
     Route: 048
  16. JUSO [Concomitant]
     Dosage: UNK
     Route: 048
  17. DOPS [Concomitant]
     Dosage: UNK
     Route: 048
  18. RISUMIC [Concomitant]
     Dosage: UNK
     Route: 048
  19. PURSENNID [Concomitant]
     Dosage: UNK
     Route: 048
  20. SORBITOL [Concomitant]
     Dosage: UNK
     Route: 048
  21. CRAVIT [Concomitant]
     Dosage: UNK
     Route: 048
  22. LOXONIN [Concomitant]
     Dosage: UNK
     Route: 048
  23. SELBEX [Concomitant]
     Dosage: UNK
     Route: 048
  24. UNSPECIFIED HERBAL [Concomitant]
     Route: 048

REACTIONS (2)
  - Lung neoplasm malignant [Not Recovered/Not Resolved]
  - Pneumonia [Recovered/Resolved]
